FAERS Safety Report 7057819-0 (Version None)
Quarter: 2010Q4

REPORT INFORMATION
  Report Type: 
  Country: None (occurrence: None)
  Receive Date: 20101022
  Receipt Date: 20101014
  Transmission Date: 20110411
  Serious: Yes (Other)
  Sender: FDA-Public Use
  Company Number: FI-JNJFOC-20090504585

PATIENT
  Sex: Male
  Weight: 132 kg

DRUGS (6)
  1. INFLIXIMAB [Suspect]
     Indication: ANKYLOSING SPONDYLITIS
     Route: 042
  2. IBUPROFEN [Concomitant]
     Route: 048
  3. METHYLPREDNISOLONE [Concomitant]
     Route: 014
  4. CETIRIZINE HCL [Concomitant]
     Route: 048
  5. CEPHALOSPORINS [Concomitant]
     Route: 048
  6. AMOXICILLIN [Concomitant]
     Indication: DENTAL DISORDER PROPHYLAXIS
     Route: 048

REACTIONS (1)
  - MALIGNANT MELANOMA [None]
